FAERS Safety Report 17136601 (Version 1)
Quarter: 2019Q4

REPORT INFORMATION
  Report Type: Spontaneous
  Country: NL (occurrence: FR)
  Receive Date: 20191210
  Receipt Date: 20191210
  Transmission Date: 20200122
  Serious: Yes (Death, Hospitalization, Other)
  Sender: FDA-Public Use
  Company Number: FR-FRESENIUS KABI-FK201913404

PATIENT
  Age: 60 Year
  Sex: Female
  Weight: 61 kg

DRUGS (11)
  1. PARACETAMOL [Concomitant]
     Active Substance: ACETAMINOPHEN
     Indication: PYREXIA
     Route: 065
  2. SULFAMETHOXAZOLE/TRIMETHOPRIM [Concomitant]
     Active Substance: SULFAMETHOXAZOLE\TRIMETHOPRIM
     Indication: PRODUCT USED FOR UNKNOWN INDICATION
     Dosage: 400 MG, QD
     Route: 065
  3. GALACTOSE/LACTULOSE/LACTOSE [Concomitant]
     Indication: CONSTIPATION
     Dosage: UNK UNK, QD
     Route: 065
  4. METOCLOPRAMIDE HYDROCHLORIDE. [Concomitant]
     Active Substance: METOCLOPRAMIDE HYDROCHLORIDE
     Indication: PRODUCT USED FOR UNKNOWN INDICATION
     Dosage: 30 MG, QD
     Route: 065
  5. BRENTUXIMAB VEDOTIN [Suspect]
     Active Substance: BRENTUXIMAB VEDOTIN
     Indication: HODGKIN^S DISEASE
     Dosage: 100 MG, UNKNOWN FREQUENCY
     Route: 065
     Dates: start: 20150914, end: 20151026
  6. VINORELBINE [Suspect]
     Active Substance: VINORELBINE TARTRATE
     Indication: HODGKIN^S DISEASE
     Dosage: UNK
     Route: 065
  7. DOXORUBICIN HYDROCHLORIDE. [Suspect]
     Active Substance: DOXORUBICIN HYDROCHLORIDE
     Indication: HODGKIN^S DISEASE
     Dosage: UNK
     Route: 065
  8. GEMCITABINE. [Suspect]
     Active Substance: GEMCITABINE
     Indication: HODGKIN^S DISEASE
     Dosage: UNK
     Route: 065
  9. VALACICLOVIR HYDROCHLORIDE [Concomitant]
     Active Substance: VALACYCLOVIR HYDROCHLORIDE
     Indication: PRODUCT USED FOR UNKNOWN INDICATION
     Dosage: 500 MG, QD
     Route: 065
  10. MOSAPRIDE CITRATE [Concomitant]
     Active Substance: MOSAPRIDE CITRATE
     Indication: PRODUCT USED FOR UNKNOWN INDICATION
     Dosage: 20 MG, QD
     Route: 065
  11. LEVOTHYROXINE SODIUM. [Concomitant]
     Active Substance: LEVOTHYROXINE SODIUM
     Indication: PRODUCT USED FOR UNKNOWN INDICATION
     Dosage: 100 UG, QD
     Route: 065

REACTIONS (8)
  - Off label use [Unknown]
  - Confusional state [Unknown]
  - Pancytopenia [Fatal]
  - Hodgkin^s disease [Fatal]
  - Bronchopulmonary aspergillosis [Fatal]
  - Ascites [Fatal]
  - Venoocclusive disease [Fatal]
  - Mucosal inflammation [Unknown]

NARRATIVE: CASE EVENT DATE: 20151215
